FAERS Safety Report 9629727 (Version 2)
Quarter: 2013Q4

REPORT INFORMATION
  Report Type: Spontaneous
  Country: CA (occurrence: CA)
  Receive Date: 20131017
  Receipt Date: 20131017
  Transmission Date: 20140711
  Serious: Yes (Other)
  Sender: FDA-Public Use
  Company Number: CA-ROCHE-568148

PATIENT
  Age: 46 Year
  Sex: Male
  Weight: 94.7 kg

DRUGS (18)
  1. FUZEON [Suspect]
     Indication: HIV INFECTION
     Dosage: FORM:VIAL, POWDER FOR INJECTION
     Route: 058
     Dates: start: 20070719, end: 200801
  2. VIREAD [Suspect]
     Indication: HIV INFECTION
     Dosage: DOSAGE REPORTED:1XOD
     Route: 048
     Dates: start: 20070719, end: 200801
  3. 3TC [Suspect]
     Indication: HIV INFECTION
     Route: 048
     Dates: start: 200410, end: 200611
  4. 3TC [Suspect]
     Route: 048
  5. 3TC [Suspect]
     Route: 048
  6. 3TC [Suspect]
     Route: 048
  7. ISENTRESS [Suspect]
     Indication: HIV INFECTION
     Dosage: DOSAGE REPORTED:1XOD
     Route: 048
     Dates: start: 20070719, end: 200801
  8. ETRAVIRINE [Suspect]
     Indication: HIV INFECTION
     Dosage: DRUG:INTELENCE,DOSAGE REPORTED:2XBID
     Route: 048
     Dates: start: 20070719, end: 200801
  9. SULFAMETHOXAZOLE/TRIMETHOPRIM [Concomitant]
     Dosage: THERAPY START DATE:PRIOR TO OCTOBER 2004, DOSAGE:1XOD
     Route: 048
  10. ACYCLOVIR [Concomitant]
     Dosage: THERAPY START DATE:PRIOR TO OCTOBER 2004
     Route: 048
  11. FOLIC ACID [Concomitant]
     Dosage: THERAPY START DATE:PRIOR TO OCTOBER 2004
     Route: 048
  12. ZOPICLONE [Concomitant]
     Dosage: THERAPY START DATE:PRIOR TO OCTOBER 2004
     Route: 048
  13. TEMAZEPAM [Concomitant]
     Dosage: THERAPY START DATE:PRIOR TO OCTOBER 2004
     Route: 048
  14. HYDROXYZINE [Concomitant]
     Dosage: THERAPY START DATE:PRIOR TO 19 JULY 2007
     Route: 048
  15. MULTIVITAMIN NOS [Concomitant]
     Dosage: THERAPY START DATE:PRIOR TO OCTOBER 2004
     Route: 048
  16. VITAMIN E [Concomitant]
     Dosage: THERAPY START DATE:PRIOR TO OCTOBER 2004
     Route: 048
  17. VITAMIN D [Concomitant]
     Route: 048
  18. FENOFIBRATE [Concomitant]
     Indication: HYPERCHOLESTEROLAEMIA
     Route: 065

REACTIONS (5)
  - Aspartate aminotransferase increased [Recovering/Resolving]
  - Alanine aminotransferase increased [Recovering/Resolving]
  - Drug-induced liver injury [Not Recovered/Not Resolved]
  - Hepatic steatosis [Not Recovered/Not Resolved]
  - Lymphadenopathy [Not Recovered/Not Resolved]
